FAERS Safety Report 8542864-6 (Version None)
Quarter: 2012Q3

REPORT INFORMATION
  Report Type: 
  Country: None (occurrence: None)
  Receive Date: 20120727
  Receipt Date: 20120721
  Transmission Date: 20120928
  Serious: Yes (Other)
  Sender: FDA-Public Use
  Company Number: CA-PAR PHARMACEUTICAL, INC-2012SCPR004517

PATIENT

DRUGS (1)
  1. PERGOLIDE MESYLATE [Suspect]
     Indication: PARKINSON'S DISEASE
     Dosage: UNK, UNKNOWN
     Route: 065

REACTIONS (2)
  - PATHOLOGICAL GAMBLING [None]
  - PERSONALITY CHANGE [None]
